FAERS Safety Report 6824901-X (Version None)
Quarter: 2010Q3

REPORT INFORMATION
  Report Type: 
  Country: None (occurrence: None)
  Receive Date: 20100708
  Receipt Date: 20070102
  Transmission Date: 20110219
  Serious: No
  Sender: FDA-Public Use
  Company Number: US-PFIZER INC-2007001804

PATIENT
  Sex: Female
  Weight: 67.13 kg

DRUGS (9)
  1. CHANTIX [Suspect]
     Indication: SMOKING CESSATION THERAPY
     Dates: start: 20061201
  2. PLAVIX [Concomitant]
  3. ACETYLSALICYLIC ACID [Concomitant]
  4. LIPITOR [Concomitant]
  5. BENICAR [Concomitant]
  6. HYDROCHLOROTHIAZIDE [Concomitant]
  7. CLONAZEPAM [Concomitant]
  8. TOPROL-XL [Concomitant]
  9. ZOLOFT [Concomitant]

REACTIONS (2)
  - HEADACHE [None]
  - NAUSEA [None]
